FAERS Safety Report 8258390-8 (Version None)
Quarter: 2012Q2

REPORT INFORMATION
  Report Type: 
  Country: None (occurrence: None)
  Receive Date: 20120403
  Receipt Date: 20120403
  Transmission Date: 20120825
  Serious: Yes (Other)
  Sender: FDA-Public Use
  Company Number: None

PATIENT
  Age: 43 Year
  Sex: Female

DRUGS (3)
  1. VENLAFAXINE HYDROCHLORIDE [Suspect]
     Dosage: 150 MG CAPS 2X A DAY
  2. LAMICTAL [Concomitant]
  3. LUNESTA [Concomitant]

REACTIONS (1)
  - URTICARIA [None]
